FAERS Safety Report 8441962 (Version 4)
Quarter: 2014Q1

REPORT INFORMATION
  Report Type: Spontaneous
  Country: US (occurrence: US)
  Receive Date: 20120305
  Receipt Date: 20140121
  Transmission Date: 20141002
  Serious: Yes (Hospitalization)
  Sender: FDA-Public Use
  Company Number: US-ASTRAZENECA-2012SE13205

PATIENT
  Age: 29961 Day
  Sex: Female
  Weight: 55.8 kg

DRUGS (15)
  1. ATACAND HCT [Suspect]
     Indication: HYPERTENSION
     Dosage: 32/ 12.5 MG, 1 TABLET, DAILY
     Route: 048
     Dates: start: 2008
  2. NEXIUM EERD [Suspect]
     Indication: ULCER HAEMORRHAGE
     Route: 048
     Dates: start: 2008
  3. CRESTOR [Suspect]
     Indication: BLOOD CHOLESTEROL
     Route: 048
     Dates: start: 2008
  4. DILTIAZEM [Concomitant]
     Route: 048
  5. MULTIPLE VITAMIN [Concomitant]
     Route: 048
  6. DULCOLAX [Concomitant]
     Dosage: 1 SUPPOSITORY AS NEEDED
     Route: 054
  7. CALCIUM D3 [Concomitant]
     Dosage: 600 MG + 1500 MG, TWICE A DAY
     Route: 048
  8. NORVASC [Concomitant]
     Route: 048
  9. MAG OXIDE [Concomitant]
     Route: 048
  10. TYLENOL-CODEINE [Concomitant]
     Dosage: 300-60 MG, AS NEEDED
     Route: 048
  11. METOPROLOL TARTRATE [Concomitant]
     Route: 048
  12. TORSEMIDE [Concomitant]
     Route: 048
  13. ALBUTEROL SULFATE [Concomitant]
     Dosage: 90 MCG/ ACTUATION, TAKE 2 HFA AEROSOL WITH ADAPTER PUFFS AS NEEDED
     Route: 055
  14. WARFARIN [Concomitant]
     Route: 048
  15. FERROUS SULFATE [Concomitant]
     Route: 048

REACTIONS (5)
  - Fall [Unknown]
  - Hip fracture [Unknown]
  - Heart valve incompetence [Unknown]
  - Hypoacusis [Unknown]
  - Off label use [Unknown]
